FAERS Safety Report 4684383-3 (Version None)
Quarter: 2005Q2

REPORT INFORMATION
  Report Type: 
  Country: None (occurrence: None)
  Receive Date: 20050531
  Receipt Date: 20040604
  Transmission Date: 20051028
  Serious: Yes (Hospitalization)
  Sender: FDA-Public Use
  Company Number: 200413927US

PATIENT
  Age: 86 Year
  Sex: Female

DRUGS (4)
  1. LOVENOX [Suspect]
     Indication: PROPHYLAXIS
     Dosage: 300 (X 1 DOSE) MG, SC
     Route: 058
     Dates: start: 20040519, end: 20040519
  2. PLAVIX [Concomitant]
  3. ASPIRIN [Concomitant]
  4. OTHER MEDICATION NOS [Concomitant]

REACTIONS (1)
  - INJECTION SITE HAEMORRHAGE [None]
